FAERS Safety Report 15949654 (Version 1)
Quarter: 2019Q1

REPORT INFORMATION
  Report Type: Spontaneous
  Country: DE (occurrence: DE)
  Receive Date: 20190212
  Receipt Date: 20190212
  Transmission Date: 20190417
  Serious: Yes (Death)
  Sender: FDA-Public Use
  Company Number: DE-BIOVITRUM-2019DE0218

PATIENT
  Age: 33 Year
  Sex: Male
  Weight: 70 kg

DRUGS (16)
  1. METOPROLOL. [Concomitant]
     Active Substance: METOPROLOL
  2. NOVALGIN [Concomitant]
     Indication: FAMILIAL MEDITERRANEAN FEVER
     Dosage: DAILY DOSE: 2000 MG MILLGRAM(S) EVERY DAYS
     Route: 048
  3. FUROSEMIDE. [Concomitant]
     Active Substance: FUROSEMIDE
     Indication: END STAGE RENAL DISEASE
     Dosage: DAILY DOSE: 500 MG MILLGRAM(S) EVERY DAYS
     Route: 048
  4. MIRTAZAPIN [Concomitant]
     Active Substance: MIRTAZAPINE
     Dosage: DAILY DOSE: 15 MG MILLGRAM(S) EVERY DAYS
  5. DEKRISTOL [Concomitant]
     Active Substance: CHOLECALCIFEROL
     Indication: END STAGE RENAL DISEASE
     Dosage: DAILY DOSE: 20000 IU INTERNATIONAL UNIT(S) EVERY 2 WEEKS
     Route: 048
  6. TROSPIUM CHLORIDE. [Concomitant]
     Active Substance: TROSPIUM CHLORIDE
     Dosage: DAILY DOSE: 45 MG MILLGRAM(S) EVERY DAYS
  7. HD VITAMINE [Concomitant]
     Indication: HAEMODIALYSIS
     Dosage: DAILY DOSE: 1 DF DOSAGE FORM EVERY DAYS
  8. AMLODIPINE [Concomitant]
     Active Substance: AMLODIPINE BESYLATE
     Dosage: DAILY DOSE: 10 MG MILLGRAM(S) EVERY DAYS
  9. SEVELAMER [Concomitant]
     Active Substance: SEVELAMER
     Dosage: DAILY DOSE: 3 DF DOSAGE FORM EVERY 2 DAYS
  10. KINERET [Suspect]
     Active Substance: ANAKINRA
     Indication: FAMILIAL MEDITERRANEAN FEVER
     Dosage: DAILY DOSE: 100 MG MILLGRAM(S) EVERY 2 DAYS
     Route: 058
     Dates: start: 20181217
  11. XIPAMID [Concomitant]
     Active Substance: XIPAMIDE
     Indication: END STAGE RENAL DISEASE
     Dosage: DAILY DOSE: 20 MG MILLGRAM(S) EVERY DAYS
     Route: 048
  12. PANTOPRAZOL [Concomitant]
     Active Substance: PANTOPRAZOLE SODIUM
     Dosage: DAILY DOSE: 80 MG MILLGRAM(S) EVERY DAYS
     Route: 048
  13. RAMIPRIL. [Concomitant]
     Active Substance: RAMIPRIL
     Indication: HYPERTENSION
     Dosage: DAILY DOSE: 10 MG MILLGRAM(S) EVERY DAYS
     Route: 048
  14. HYDROMORPHONE [Concomitant]
     Active Substance: HYDROMORPHONE
     Dosage: DAILY DOSE: 8 MG MILLGRAM(S) EVERY DAYS
  15. PALLADON [Concomitant]
     Active Substance: HYDROMORPHONE
     Dosage: DAILY DOSE: 5.2 MG MILLGRAM(S) EVERY DAYS
  16. ZOLPIDEM [Concomitant]
     Active Substance: ZOLPIDEM\ZOLPIDEM TARTRATE
     Dosage: DAILY DOSE: 10 MG MILLGRAM(S) EVERY DAYS

REACTIONS (2)
  - Off label use [Unknown]
  - Death [Fatal]

NARRATIVE: CASE EVENT DATE: 20190106
